FAERS Safety Report 10189946 (Version 1)
Quarter: 2014Q2

REPORT INFORMATION
  Report Type: Spontaneous
  Country: GB (occurrence: GB)
  Receive Date: 20140522
  Receipt Date: 20140522
  Transmission Date: 20141212
  Serious: Yes (Other)
  Sender: FDA-Public Use
  Company Number: GB-ABBVIE-14K-167-1239421-00

PATIENT
  Age: 60 Year
  Sex: Male

DRUGS (2)
  1. EPILIM [Suspect]
     Indication: PRODUCT USED FOR UNKNOWN INDICATION
  2. TRAMADOL [Interacting]
     Indication: PRODUCT USED FOR UNKNOWN INDICATION
     Dates: start: 20140501

REACTIONS (2)
  - Convulsion [Recovered/Resolved]
  - Drug interaction [Recovered/Resolved]
